FAERS Safety Report 8619891-3 (Version None)
Quarter: 2012Q3

REPORT INFORMATION
  Report Type: 
  Country: None (occurrence: None)
  Receive Date: 20120824
  Receipt Date: 20120716
  Transmission Date: 20120928
  Serious: Yes (Other)
  Sender: FDA-Public Use
  Company Number: US-GLAXOSMITHKLINE-A0984592A

PATIENT
  Age: 63 Year
  Sex: Male

DRUGS (5)
  1. DEXAMETHASONE [Concomitant]
  2. DIPHENHYDRAMINE HYDROCHLORIDE [Concomitant]
  3. ARZERRA [Suspect]
     Indication: CHRONIC LYMPHOCYTIC LEUKAEMIA
     Dosage: 300MG SINGLE DOSE
     Route: 042
     Dates: start: 20120709
  4. CETIRIZINE [Concomitant]
  5. ACETAMINOPHEN [Concomitant]

REACTIONS (1)
  - URTICARIA [None]
